FAERS Safety Report 5611373-6 (Version None)
Quarter: 2008Q1

REPORT INFORMATION
  Report Type: 
  Country: None (occurrence: None)
  Receive Date: 20080201
  Receipt Date: 20080122
  Transmission Date: 20080703
  Serious: Yes (Hospitalization)
  Sender: FDA-Public Use
  Company Number: FR-PFIZER INC-2008006628

PATIENT
  Sex: Male

DRUGS (11)
  1. VFEND [Suspect]
     Route: 048
     Dates: start: 20050915, end: 20071003
  2. ZITHROMAX [Suspect]
  3. PROGRAF [Concomitant]
  4. CELLCEPT [Concomitant]
  5. CORTANCYL [Concomitant]
  6. BACTRIM [Concomitant]
  7. CACIT D3 [Concomitant]
  8. FOSAMAX [Concomitant]
  9. DOMPERIDONE [Concomitant]
  10. NEXIUM [Concomitant]
  11. TAHOR [Concomitant]

REACTIONS (1)
  - CONGESTIVE CARDIOMYOPATHY [None]
